FAERS Safety Report 5646322-8 (Version None)
Quarter: 2008Q1

REPORT INFORMATION
  Report Type: 
  Country: None (occurrence: None)
  Receive Date: 20080227
  Receipt Date: 20080227
  Transmission Date: 20080703
  Serious: Yes (Other)
  Sender: FDA-Public Use
  Company Number: None

PATIENT
  Age: 43 Year
  Sex: Female
  Weight: 48.5349 kg

DRUGS (2)
  1. REBIF [Suspect]
     Indication: MULTIPLE SCLEROSIS
     Dosage: 8.8MCG 3X PER WEEK SQ : 22 MCG 3X PER WEEK SQ
     Route: 058
     Dates: start: 20070601, end: 20070902
  2. REBIF [Suspect]
     Indication: MULTIPLE SCLEROSIS
     Dosage: 8.8MCG 3X PER WEEK SQ : 22 MCG 3X PER WEEK SQ
     Route: 058
     Dates: start: 20080201, end: 20080225

REACTIONS (7)
  - ANAEMIA [None]
  - BLOOD IRON DECREASED [None]
  - CONDITION AGGRAVATED [None]
  - FULL BLOOD COUNT ABNORMAL [None]
  - LEUKOPENIA [None]
  - MULTIPLE SCLEROSIS [None]
  - SERUM FERRITIN DECREASED [None]
